FAERS Safety Report 13376177 (Version 1)
Quarter: 2017Q1

REPORT INFORMATION
  Report Type: Spontaneous
  Country: IL (occurrence: IL)
  Receive Date: 20170328
  Receipt Date: 20170328
  Transmission Date: 20170429
  Serious: Yes (Hospitalization, Other)
  Sender: FDA-Public Use
  Company Number: IL-SHIRE-IL201705709

PATIENT
  Age: 19 Year
  Sex: Male

DRUGS (2)
  1. ELAPRASE [Suspect]
     Active Substance: IDURSULFASE
     Indication: MUCOPOLYSACCHARIDOSIS II
     Dosage: 24 MG ALTERNATING WITH 30 MG (4/5 VIALS ALTERNATING EVERY WEEK), 1X/WEEK
     Route: 041
  2. BUDICORT [Concomitant]
     Indication: LUNG DISORDER
     Dosage: UNK, UNKNOWN
     Route: 065

REACTIONS (7)
  - Dyspnoea [Recovering/Resolving]
  - Respiratory distress [Recovering/Resolving]
  - Sleep apnoea syndrome [Unknown]
  - Rhinorrhoea [Recovering/Resolving]
  - Human metapneumovirus test positive [Unknown]
  - Tachypnoea [Recovering/Resolving]
  - Cough [Recovering/Resolving]

NARRATIVE: CASE EVENT DATE: 201703
